FAERS Safety Report 25004575 (Version 1)
Quarter: 2025Q1

REPORT INFORMATION
  Report Type: Spontaneous
  Country: US (occurrence: US)
  Receive Date: 20250224
  Receipt Date: 20250224
  Transmission Date: 20250408
  Serious: No
  Sender: Haleon PLC
  Company Number: US-HALEON-2229330

PATIENT

DRUGS (1)
  1. ADVIL DUAL ACTION WITH ACETAMINOPHEN BACK PAIN [Suspect]
     Active Substance: ACETAMINOPHEN\IBUPROFEN
     Indication: Influenza

REACTIONS (2)
  - Drug effective for unapproved indication [Unknown]
  - Product use in unapproved indication [Unknown]
